FAERS Safety Report 8337235-1 (Version None)
Quarter: 2012Q2

REPORT INFORMATION
  Report Type: 
  Country: None (occurrence: None)
  Receive Date: 20120504
  Receipt Date: 20120426
  Transmission Date: 20120825
  Serious: Yes (Death, Life-Threatening)
  Sender: FDA-Public Use
  Company Number: JP-VERTEX PHARMACEUTICALS INC.-AE-2012-003675

PATIENT
  Age: 64 Year
  Sex: Male

DRUGS (11)
  1. URSO 250 [Concomitant]
     Route: 048
     Dates: end: 20120311
  2. TELAVIC (TELAPREVIR) [Suspect]
     Indication: HEPATITIS C
     Route: 048
     Dates: start: 20120306, end: 20120311
  3. PORTOLAC [Concomitant]
     Route: 048
     Dates: start: 20091101, end: 20120312
  4. PEG-INTRON [Concomitant]
     Indication: HEPATITIS C
     Route: 058
     Dates: start: 20120306, end: 20120306
  5. TALION OD [Concomitant]
     Route: 048
     Dates: start: 20120306, end: 20120312
  6. ACTOS [Concomitant]
     Route: 048
     Dates: start: 20080501, end: 20120311
  7. MAGMITT [Concomitant]
     Route: 048
     Dates: end: 20120312
  8. AMARYL [Concomitant]
     Route: 048
     Dates: start: 20070401, end: 20120311
  9. RIBAVIRIN [Concomitant]
     Indication: HEPATITIS C
     Route: 048
     Dates: start: 20120306, end: 20120311
  10. NEXIUM [Concomitant]
     Route: 048
     Dates: start: 20120306, end: 20120312
  11. PROMAC D [Concomitant]
     Route: 048
     Dates: start: 20030101, end: 20120312

REACTIONS (1)
  - LIVER DISORDER [None]
